FAERS Safety Report 25036014 (Version 1)
Quarter: 2025Q1

REPORT INFORMATION
  Report Type: Spontaneous
  Country: US (occurrence: None)
  Receive Date: 20250303
  Receipt Date: 20250303
  Transmission Date: 20250409
  Serious: No
  Sender: FDA-CTU
  Company Number: None

PATIENT
  Age: 77 Year
  Sex: Male
  Weight: 101.7 kg

DRUGS (8)
  1. CAPECITABINE [Suspect]
     Active Substance: CAPECITABINE
     Dosage: 2250 MG TWICE A DAY ORAL
     Route: 048
  2. OMEPRAZOLE [Concomitant]
     Active Substance: OMEPRAZOLE
  3. TRAMADOL [Concomitant]
     Active Substance: TRAMADOL
  4. Hyzaar 100/12.5 mg [Concomitant]
  5. Zetia 10 mg [Concomitant]
  6. Mucinex fast max 5/10/200/325 mg [Concomitant]
  7. VITAMINS [Concomitant]
     Active Substance: VITAMINS
  8. DIPHENHYDRAMINE [Concomitant]
     Active Substance: DIPHENHYDRAMINE

REACTIONS (1)
  - Arthralgia [None]

NARRATIVE: CASE EVENT DATE: 20250303
